FAERS Safety Report 9746370 (Version 1)
Quarter: 2013Q4

REPORT INFORMATION
  Report Type: Spontaneous
  Country: US (occurrence: US)
  Receive Date: 20131211
  Receipt Date: 20131211
  Transmission Date: 20140711
  Serious: Yes (Other)
  Sender: FDA-Public Use
  Company Number: US-ASTRAZENECA-2013SE88803

PATIENT
  Sex: Female

DRUGS (3)
  1. ANASTROZOLE [Suspect]
     Indication: BREAST CANCER
     Route: 048
     Dates: start: 2007, end: 2012
  2. CALCIUM AND VIT D [Concomitant]
  3. MAGNESIUM [Concomitant]

REACTIONS (4)
  - Fall [Recovered/Resolved]
  - Clavicle fracture [Recovered/Resolved]
  - Hypoacusis [Not Recovered/Not Resolved]
  - Overweight [Not Recovered/Not Resolved]
